FAERS Safety Report 18344994 (Version 1)
Quarter: 2020Q4

REPORT INFORMATION
  Report Type: Spontaneous
  Country: US (occurrence: US)
  Receive Date: 20201005
  Receipt Date: 20201005
  Transmission Date: 20210114
  Serious: No
  Sender: FDA-Public Use
  Company Number: US-ALLERGAN-2027668US

PATIENT
  Age: 19 Year
  Sex: Female

DRUGS (4)
  1. CLARITIN [Concomitant]
     Active Substance: LORATADINE
  2. FLONASE [Concomitant]
     Active Substance: FLUTICASONE PROPIONATE
  3. NORGESTIMATE [Concomitant]
     Active Substance: NORGESTIMATE
     Indication: CONTRACEPTION
  4. LINZESS [Suspect]
     Active Substance: LINACLOTIDE
     Indication: PRODUCT USED FOR UNKNOWN INDICATION
     Dosage: 145 ?G, QD
     Dates: start: 20200716

REACTIONS (1)
  - Diarrhoea [Recovered/Resolved]

NARRATIVE: CASE EVENT DATE: 20200717
